FAERS Safety Report 5343265-4 (Version None)
Quarter: 2007Q2

REPORT INFORMATION
  Report Type: 
  Country: None (occurrence: None)
  Receive Date: 20070502
  Receipt Date: 20070114
  Transmission Date: 20071010
  Serious: Yes (Other)
  Sender: FDA-Public Use
  Company Number: PHEH2007US00882

PATIENT
  Sex: Male

DRUGS (4)
  1. LOTREL [Suspect]
     Indication: HYPERTENSION
     Dosage: 10/20 MG, QD, ORAL
     Route: 048
     Dates: start: 20050101
  2. ATENOLOL [Concomitant]
  3. LEVOTHYROXINE SODIUM [Concomitant]
  4. POTASSIUM CHLORIDE [Concomitant]

REACTIONS (8)
  - ABDOMINAL PAIN UPPER [None]
  - CARDIAC FAILURE CONGESTIVE [None]
  - CONSTIPATION [None]
  - COUGH [None]
  - GOUT [None]
  - OEDEMA PERIPHERAL [None]
  - PITTING OEDEMA [None]
  - WHEEZING [None]
